FAERS Safety Report 16478731 (Version 2)
Quarter: 2020Q3

REPORT INFORMATION
  Report Type: Spontaneous
  Country: US (occurrence: US)
  Receive Date: 20190626
  Receipt Date: 20200804
  Transmission Date: 20201102
  Serious: No
  Sender: FDA-Public Use
  Company Number: US-PFIZER INC-2017015679

PATIENT
  Age: 66 Year
  Sex: Male
  Weight: 79.38 kg

DRUGS (5)
  1. LYRICA [Suspect]
     Active Substance: PREGABALIN
     Indication: PAIN IN EXTREMITY
  2. LYRICA [Suspect]
     Active Substance: PREGABALIN
     Indication: NEUROPATHY PERIPHERAL
     Dosage: 300 MG, 3X/DAY
     Route: 048
     Dates: start: 20170622
  3. LYRICA [Suspect]
     Active Substance: PREGABALIN
     Indication: FIBROMATOSIS
  4. LYRICA [Suspect]
     Active Substance: PREGABALIN
     Indication: LUMBAR RADICULOPATHY
     Dosage: UNK
     Route: 048
     Dates: start: 2009
  5. LYRICA [Suspect]
     Active Substance: PREGABALIN
     Indication: PAIN
     Dosage: 300 MG, 3X/DAY300 MG (1 CAPSULE) 3 (THREE) TIMES A DAY
     Route: 048
     Dates: start: 20161020, end: 20161119

REACTIONS (3)
  - Back pain [Unknown]
  - Prescribed overdose [Unknown]
  - Corrective lens user [Unknown]
